FAERS Safety Report 4545448-X (Version None)
Quarter: 2004Q4

REPORT INFORMATION
  Report Type: 
  Country: None (occurrence: None)
  Receive Date: 20041223
  Receipt Date: 20040831
  Transmission Date: 20050328
  Serious: No
  Sender: FDA-Public Use
  Company Number: US-JNJFOC-20040900866

PATIENT
  Age: 19 Year
  Sex: Female
  Weight: 107.9561 kg

DRUGS (1)
  1. ORTHO EVRA [Suspect]
     Indication: MENSTRUAL DISORDER
     Dosage: 1 DOSE(S), 3 IN 4 DAY, TRANSDERMAL
     Route: 062
     Dates: start: 20040101

REACTIONS (1)
  - METRORRHAGIA [None]
